FAERS Safety Report 12935049 (Version 1)
Quarter: 2016Q4

REPORT INFORMATION
  Report Type: Spontaneous
  Country: FR (occurrence: FR)
  Receive Date: 20161113
  Receipt Date: 20161113
  Transmission Date: 20170207
  Serious: Yes (Other)
  Sender: FDA-Public Use
  Company Number: FR-ROCHE-1852736

PATIENT
  Age: 44 Year
  Sex: Female

DRUGS (11)
  1. ZELITREX [Concomitant]
     Active Substance: VALACYCLOVIR HYDROCHLORIDE
  2. MABTHERA [Suspect]
     Active Substance: RITUXIMAB
     Indication: LYMPHOCYTIC LYMPHOMA
     Dosage: 08/AUG/2016: 1ST CURSE, 29/AUG/2016: 2ND COURSE, 26/SEP/2016: 3RDCOURSE
     Route: 042
     Dates: start: 20160808, end: 20160926
  3. ENDOXAN [Suspect]
     Active Substance: CYCLOPHOSPHAMIDE
     Route: 042
     Dates: start: 20161026
  4. BACTRIM [Concomitant]
     Active Substance: SULFAMETHOXAZOLE\TRIMETHOPRIM
     Route: 065
  5. MABTHERA [Suspect]
     Active Substance: RITUXIMAB
     Route: 042
     Dates: start: 20161026
  6. GRANOCYTE [Concomitant]
     Active Substance: LENOGRASTIM
  7. FLUDARABINE PHOSPHATE. [Suspect]
     Active Substance: FLUDARABINE PHOSPHATE
     Indication: LYMPHOCYTIC LYMPHOMA
     Dosage: 29/AUG/2016: 1ST COURSE, 26/SEP/2016: 2ND COURSE
     Route: 042
     Dates: start: 20160829, end: 20160926
  8. FLUDARABINE PHOSPHATE. [Suspect]
     Active Substance: FLUDARABINE PHOSPHATE
     Route: 042
     Dates: start: 20161026
  9. ENDOXAN [Suspect]
     Active Substance: CYCLOPHOSPHAMIDE
     Indication: LYMPHOCYTIC LYMPHOMA
     Dosage: 29/AUG/2016: 1ST COURSE, 26/SEP/2016: 2ND COURSE
     Route: 042
     Dates: start: 20160829, end: 20160926
  10. NEORECORMON [Concomitant]
     Active Substance: ERYTHROPOIETIN
  11. LUTENYL [Concomitant]
     Active Substance: NOMEGESTROL ACETATE

REACTIONS (1)
  - Rash maculo-papular [Recovered/Resolved]

NARRATIVE: CASE EVENT DATE: 20161002
